FAERS Safety Report 22599558 (Version 1)
Quarter: 2023Q2

REPORT INFORMATION
  Report Type: Spontaneous
  Country: US (occurrence: None)
  Receive Date: 20230614
  Receipt Date: 20230614
  Transmission Date: 20230722
  Serious: Yes (Hospitalization)
  Sender: FDA-Public Use
  Company Number: 2023A132441

PATIENT
  Age: 952 Month
  Sex: Male
  Weight: 105.2 kg

DRUGS (14)
  1. CALQUENCE [Suspect]
     Active Substance: ACALABRUTINIB
     Indication: Chronic lymphocytic leukaemia
     Route: 048
     Dates: start: 20230518
  2. ACYCLOVIR [Concomitant]
     Active Substance: ACYCLOVIR
  3. AMLODIPINE [Concomitant]
     Active Substance: AMLODIPINE BESYLATE
  4. BACTRIM [Concomitant]
     Active Substance: SULFAMETHOXAZOLE\TRIMETHOPRIM
  5. BENZONATATE [Concomitant]
     Active Substance: BENZONATATE
  6. ELIQUIS [Concomitant]
     Active Substance: APIXABAN
  7. ASPIRIN [Concomitant]
     Active Substance: ASPIRIN
  8. NORCO [Concomitant]
     Active Substance: ACETAMINOPHEN\HYDROCODONE BITARTRATE
  9. IRBESARTAN [Concomitant]
     Active Substance: IRBESARTAN
  10. ISOSORBIDE [Concomitant]
     Active Substance: ISOSORBIDE
  11. LOSARTAN [Concomitant]
     Active Substance: LOSARTAN
  12. LOVASTATIN [Concomitant]
     Active Substance: LOVASTATIN
  13. MEDROL [Concomitant]
     Active Substance: METHYLPREDNISOLONE
  14. METOPROLOL [Concomitant]
     Active Substance: METOPROLOL

REACTIONS (2)
  - Hypersensitivity [Recovering/Resolving]
  - Renal disorder [Unknown]

NARRATIVE: CASE EVENT DATE: 20230501
